FAERS Safety Report 15538294 (Version 1)
Quarter: 2018Q4

REPORT INFORMATION
  Report Type: Spontaneous
  Country: US (occurrence: US)
  Receive Date: 20181022
  Receipt Date: 20181022
  Transmission Date: 20190205
  Serious: Yes (Other)
  Sender: FDA-Public Use
  Company Number: US-BAYER-2018-192876

PATIENT
  Age: 35 Year
  Sex: Female

DRUGS (1)
  1. MIRENA [Suspect]
     Active Substance: LEVONORGESTREL
     Indication: CONTRACEPTION
     Dosage: 20 MCG/24HR, CONT
     Route: 015
     Dates: start: 20180628, end: 2018

REACTIONS (11)
  - Weight decreased [None]
  - Abdominal distension [None]
  - Vaginal haemorrhage [None]
  - Adverse event [None]
  - Carpal tunnel decompression [None]
  - Vomiting [None]
  - Abdominal rigidity [None]
  - Abdominal pain lower [None]
  - Breast tenderness [None]
  - Fall [None]
  - Genital haemorrhage [None]

NARRATIVE: CASE EVENT DATE: 2018
